FAERS Safety Report 21699715 (Version 1)
Quarter: 2022Q4

REPORT INFORMATION
  Report Type: Spontaneous
  Country: None (occurrence: FR)
  Receive Date: 20221208
  Receipt Date: 20221208
  Transmission Date: 20230112
  Serious: Yes (Death)
  Sender: FDA-Public Use
  Company Number: FR-B.Braun Medical Inc.-2135676

PATIENT
  Age: 63 Year
  Sex: Male

DRUGS (8)
  1. METRONIDAZOLE [Suspect]
     Active Substance: METRONIDAZOLE
  2. LEVETIRACETAM [Suspect]
     Active Substance: LEVETIRACETAM
  3. PANTOPRAZOLE SODIUM [Suspect]
     Active Substance: PANTOPRAZOLE SODIUM
  4. PIPERACILLIN SODIUM\TAZOBACTAM SODIUM [Suspect]
     Active Substance: PIPERACILLIN SODIUM\TAZOBACTAM SODIUM
  5. CALCIPARINE [Suspect]
     Active Substance: HEPARIN CALCIUM
  6. CEFEPIME HYDROCHLORIDE [Suspect]
     Active Substance: CEFEPIME HYDROCHLORIDE
  7. FOLIC ACID [Suspect]
     Active Substance: FOLIC ACID
  8. DUPHALAC [Suspect]
     Active Substance: LACTULOSE

REACTIONS (2)
  - Condition aggravated [Fatal]
  - Coma [Fatal]
